FAERS Safety Report 21567022 (Version 1)
Quarter: 2022Q4

REPORT INFORMATION
  Report Type: Spontaneous
  Country: US (occurrence: None)
  Receive Date: 20221107
  Receipt Date: 20221107
  Transmission Date: 20230112
  Serious: Yes (Other)
  Sender: FDA-Public Use
  Company Number: None

PATIENT
  Age: 52 Year
  Sex: Female
  Weight: 109.9 kg

DRUGS (4)
  1. AMPICILLIN SODIUM\SULBACTAM SODIUM [Suspect]
     Active Substance: AMPICILLIN SODIUM\SULBACTAM SODIUM
     Indication: Post procedural infection
     Dosage: FREQUENCY : 4 TIMES A DAY;?
     Route: 042
     Dates: start: 20220925, end: 20221025
  2. AMPICILLIN SODIUM\SULBACTAM SODIUM [Suspect]
     Active Substance: AMPICILLIN SODIUM\SULBACTAM SODIUM
     Indication: Post procedural infection
     Dosage: FREQUENCY : 4 TIMES A DAY;?
     Route: 042
     Dates: start: 20220925, end: 20221025
  3. VANCOMYCIN [Concomitant]
     Active Substance: VANCOMYCIN
     Dates: end: 20221107
  4. ERTAPENEM [Concomitant]
     Active Substance: ERTAPENEM
     Dates: end: 20221107

REACTIONS (7)
  - Rash [None]
  - Pruritus [None]
  - Nausea [None]
  - Eosinophil count increased [None]
  - Transaminases increased [None]
  - Infusion related hypersensitivity reaction [None]
  - Drug reaction with eosinophilia and systemic symptoms [None]

NARRATIVE: CASE EVENT DATE: 20221024
